FAERS Safety Report 6553667-6 (Version None)
Quarter: 2010Q1

REPORT INFORMATION
  Report Type: 
  Country: None (occurrence: None)
  Receive Date: 20100127
  Receipt Date: 20100115
  Transmission Date: 20100710
  Serious: Yes (Other)
  Sender: FDA-Public Use
  Company Number: PHHY2009GB54755

PATIENT
  Sex: Male
  Weight: 95 kg

DRUGS (5)
  1. CLOZARIL [Suspect]
     Indication: SCHIZOPHRENIA
     Dosage: 450 MG, QD
     Route: 048
     Dates: start: 19981007
  2. FLUOXETINE [Concomitant]
     Indication: DEPRESSION
     Dosage: 20 MG, UNK
     Route: 048
  3. AMLODIPINE [Concomitant]
     Indication: HYPERTENSION
     Dosage: 10 MG, UNK
     Route: 048
  4. OMEPRAZOLE [Concomitant]
     Indication: PEPTIC ULCER
     Dosage: 20 MG, UNK
     Route: 048
  5. HYOSCINE HBR HYT [Concomitant]
     Indication: SALIVARY HYPERSECRETION
     Dosage: 300 UG, UNK
     Route: 048

REACTIONS (2)
  - CELLULITIS [None]
  - DIABETES MELLITUS [None]
